FAERS Safety Report 5583034-3 (Version None)
Quarter: 2008Q1

REPORT INFORMATION
  Report Type: 
  Country: None (occurrence: None)
  Receive Date: 20080107
  Receipt Date: 20080103
  Transmission Date: 20080703
  Serious: Yes (Other)
  Sender: FDA-Public Use
  Company Number: A0701216A

PATIENT
  Age: 63 Year
  Sex: Female

DRUGS (4)
  1. WELLBUTRIN [Suspect]
     Indication: DEPRESSION
     Dosage: 75MG THREE TIMES PER DAY
     Route: 048
     Dates: start: 20020101, end: 20050101
  2. HORMONE REPLACEMENT [Concomitant]
  3. MOTRIN [Concomitant]
  4. DETROL [Concomitant]

REACTIONS (2)
  - ABDOMINAL DISTENSION [None]
  - APHASIA [None]
